FAERS Safety Report 11500984 (Version 1)
Quarter: 2015Q3

REPORT INFORMATION
  Report Type: Spontaneous
  Country: US (occurrence: US)
  Receive Date: 20150903
  Receipt Date: 20150903
  Transmission Date: 20151125
  Serious: No
  Sender: FDA-Public Use
  Company Number: US-ELI_LILLY_AND_COMPANY-US200901002439

PATIENT
  Age: 61 Year
  Sex: Female

DRUGS (5)
  1. HUMALOG MIX75/25 [Suspect]
     Active Substance: INSULIN LISPRO
     Dosage: 33 U, 3/D
     Route: 058
  2. HUMALOG MIX75/25 [Suspect]
     Active Substance: INSULIN LISPRO
     Indication: TYPE 2 DIABETES MELLITUS
     Dates: start: 20090112
  3. METFORMIN [Concomitant]
     Active Substance: METFORMIN HYDROCHLORIDE
     Indication: TYPE 2 DIABETES MELLITUS
     Dates: end: 20090111
  4. GLIPIZIDE. [Concomitant]
     Active Substance: GLIPIZIDE
     Dates: end: 20090111
  5. GLIPIZIDE. [Concomitant]
     Active Substance: GLIPIZIDE
     Dates: end: 20090111

REACTIONS (2)
  - Expired product administered [Unknown]
  - Blood glucose increased [Recovering/Resolving]

NARRATIVE: CASE EVENT DATE: 20090112
